FAERS Safety Report 24620256 (Version 1)
Quarter: 2024Q4

REPORT INFORMATION
  Report Type: Spontaneous
  Country: US (occurrence: US)
  Receive Date: 20241114
  Receipt Date: 20241114
  Transmission Date: 20250115
  Serious: No
  Sender: PFIZER
  Company Number: US-PFIZER INC-PV202400146917

PATIENT
  Age: 43 Year
  Sex: Female
  Weight: 87.982 kg

DRUGS (2)
  1. NURTEC ODT [Suspect]
     Active Substance: RIMEGEPANT SULFATE
     Dosage: UNK
  2. ESTRADIOL [Concomitant]
     Active Substance: ESTRADIOL
     Dosage: 0.9 MG, DAILY
     Route: 048
     Dates: start: 2010

REACTIONS (1)
  - Nausea [Unknown]

NARRATIVE: CASE EVENT DATE: 20200507
